FAERS Safety Report 7809340-7 (Version None)
Quarter: 2011Q4

REPORT INFORMATION
  Report Type: 
  Country: None (occurrence: None)
  Receive Date: 20111012
  Receipt Date: 20111011
  Transmission Date: 20120403
  Serious: Yes (Death)
  Sender: FDA-Public Use
  Company Number: NO-BAYER-2011-097248

PATIENT
  Age: 72 Year
  Sex: Male

DRUGS (7)
  1. HUMALOG [Concomitant]
     Indication: DIABETES MELLITUS
     Route: 058
  2. SORAFENIB (RAF KINASE INHIBITOR) [Suspect]
     Route: 048
     Dates: start: 20110914
  3. ENOXAPARIN SODIUM [Concomitant]
     Route: 058
  4. VALSARTAN [Concomitant]
     Route: 048
  5. MORPHINE SULFATE [Concomitant]
     Route: 048
  6. METOPROLOL TARTRATE [Concomitant]
     Route: 048
  7. HUMALOG [Concomitant]
     Indication: DIABETES MELLITUS
     Route: 058

REACTIONS (1)
  - CARDIAC ARREST [None]
